FAERS Safety Report 6742589-3 (Version None)
Quarter: 2010Q2

REPORT INFORMATION
  Report Type: 
  Country: None (occurrence: None)
  Receive Date: 20100526
  Receipt Date: 20100516
  Transmission Date: 20101027
  Serious: Yes (Hospitalization, Disabling, Other)
  Sender: FDA-Public Use
  Company Number: US-ABBOTT-10P-163-0645601-00

PATIENT
  Sex: Female
  Weight: 74.91 kg

DRUGS (4)
  1. HUMIRA [Suspect]
     Indication: CROHN'S DISEASE
     Route: 058
     Dates: start: 20070101, end: 20090901
  2. HUMIRA [Suspect]
     Route: 058
     Dates: start: 20100201, end: 20100401
  3. LAMICTAL [Concomitant]
     Indication: BIPOLAR DISORDER
  4. UNKNOWN MEDICATION [Concomitant]
     Indication: THROMBOSIS PROPHYLAXIS
     Dates: start: 20090901, end: 20090901

REACTIONS (12)
  - BLOOD CORTISOL DECREASED [None]
  - CEREBRAL HAEMORRHAGE [None]
  - COGNITIVE DISORDER [None]
  - CROHN'S DISEASE [None]
  - HYPERTENSION [None]
  - HYPOPITUITARISM [None]
  - LUNG DISORDER [None]
  - PNEUMONITIS [None]
  - PULMONARY ALVEOLAR HAEMORRHAGE [None]
  - RESPIRATORY FAILURE [None]
  - SPEECH DISORDER [None]
  - URINARY TRACT INFECTION [None]
